FAERS Safety Report 5752629-6 (Version None)
Quarter: 2008Q2

REPORT INFORMATION
  Report Type: 
  Country: None (occurrence: None)
  Receive Date: 20080529
  Receipt Date: 20080519
  Transmission Date: 20081010
  Serious: Yes (Other)
  Sender: FDA-Public Use
  Company Number: US-JNJFOC-20061006168

PATIENT
  Sex: Male
  Weight: 127.01 kg

DRUGS (6)
  1. RISPERDAL [Suspect]
     Indication: BIPOLAR I DISORDER
  2. HYDROCODONE BITARTRATE [Concomitant]
  3. VISTARIL [Concomitant]
  4. LEXOPRO [Concomitant]
  5. ASPIRIN [Concomitant]
  6. MELATONIN [Concomitant]

REACTIONS (2)
  - DIABETES MELLITUS [None]
  - DRUG INEFFECTIVE [None]
